FAERS Safety Report 24262412 (Version 1)
Quarter: 2024Q3

REPORT INFORMATION
  Report Type: Report from Study
  Country: CA (occurrence: CA)
  Receive Date: 20240829
  Receipt Date: 20240829
  Transmission Date: 20241016
  Serious: Yes (Hospitalization)
  Sender: CSL BEHRING
  Company Number: CA-BEH-2024177658

PATIENT
  Age: 72 Year
  Sex: Male
  Weight: 105 kg

DRUGS (7)
  1. HIZENTRA [Suspect]
     Active Substance: HUMAN IMMUNOGLOBULIN G
     Indication: Secondary immunodeficiency
     Dosage: 18 G
     Route: 065
     Dates: start: 20230213
  2. ACYCLOVIR [Concomitant]
     Active Substance: ACYCLOVIR
  3. DULOXETINE [Concomitant]
     Active Substance: DULOXETINE
  4. LENALIDOMIDE [Concomitant]
     Active Substance: LENALIDOMIDE
  5. PREGABALIN [Concomitant]
     Active Substance: PREGABALIN
  6. XARELTO [Concomitant]
     Active Substance: RIVAROXABAN
  7. PANTOPRAZOLE [Concomitant]
     Active Substance: PANTOPRAZOLE

REACTIONS (1)
  - Myelodysplastic syndrome [Unknown]
